FAERS Safety Report 24067395 (Version 1)
Quarter: 2024Q3

REPORT INFORMATION
  Report Type: Spontaneous
  Country: US (occurrence: US)
  Receive Date: 20240709
  Receipt Date: 20240709
  Transmission Date: 20241016
  Serious: Yes (Death, Hospitalization, Other)
  Sender: BAYER
  Company Number: US-BAYER-2024A094500

PATIENT
  Age: 61 Year
  Sex: Male

DRUGS (4)
  1. ADEMPAS [Suspect]
     Active Substance: RIOCIGUAT
     Indication: Pulmonary hypertension
     Dosage: 2.5 MG, TID
     Route: 048
     Dates: start: 20181119, end: 20240611
  2. OZEMPIC [Concomitant]
     Active Substance: SEMAGLUTIDE
  3. STIOLTO RESPIMAT [Concomitant]
     Active Substance: OLODATEROL HYDROCHLORIDE\TIOTROPIUM BROMIDE MONOHYDRATE
  4. ENOXAPARIN [Concomitant]
     Active Substance: ENOXAPARIN

REACTIONS (9)
  - Death [Fatal]
  - Syncope [None]
  - Acute respiratory failure [None]
  - Cardiac arrest [None]
  - Pulmonary embolism [None]
  - Seizure [None]
  - Brain injury [None]
  - Epistaxis [Recovered/Resolved]
  - Dyspnoea [None]

NARRATIVE: CASE EVENT DATE: 20240101
